FAERS Safety Report 10866952 (Version 1)
Quarter: 2015Q1

REPORT INFORMATION
  Report Type: Spontaneous
  Country: US (occurrence: None)
  Receive Date: 20150220
  Receipt Date: 20150220
  Transmission Date: 20150721
  Serious: Yes (Life-Threatening, Disabling, Other)
  Sender: FDA-Public Use
  Company Number: None

PATIENT
  Age: 57 Year
  Sex: Male
  Weight: 89 kg

DRUGS (6)
  1. SPRYCEL [Suspect]
     Active Substance: DASATINIB
     Indication: CHEMOTHERAPY
     Route: 048
  2. TASIGNA [Concomitant]
     Active Substance: NILOTINIB
  3. VIT K ANTAGONISTS [Concomitant]
     Active Substance: UNSPECIFIED INGREDIENT
  4. INDOMETHACIN. [Concomitant]
     Active Substance: INDOMETHACIN
  5. GLEEVEC [Concomitant]
     Active Substance: IMATINIB MESYLATE
  6. LOVENOX [Concomitant]
     Active Substance: ENOXAPARIN SODIUM

REACTIONS (5)
  - Hydrocephalus [None]
  - Brain herniation [None]
  - Chest pain [None]
  - Haemorrhage intracranial [None]
  - Unresponsive to stimuli [None]

NARRATIVE: CASE EVENT DATE: 20150218
